FAERS Safety Report 23164664 (Version 1)
Quarter: 2023Q4

REPORT INFORMATION
  Report Type: Spontaneous
  Country: AR (occurrence: AR)
  Receive Date: 20231109
  Receipt Date: 20231109
  Transmission Date: 20240110
  Serious: Yes (Other)
  Sender: FDA-Public Use
  Company Number: AR-SA-2023SA343824

PATIENT
  Age: 15 Year
  Sex: Male

DRUGS (1)
  1. RASBURICASE [Suspect]
     Active Substance: RASBURICASE
     Indication: B precursor type acute leukaemia
     Dosage: UNK

REACTIONS (1)
  - Haemolytic anaemia [Unknown]
